FAERS Safety Report 9302214 (Version 2)
Quarter: 2013Q3

REPORT INFORMATION
  Report Type: Spontaneous
  Country: FR (occurrence: FR)
  Receive Date: 20130522
  Receipt Date: 20130702
  Transmission Date: 20140515
  Serious: Yes (Life-Threatening, Hospitalization)
  Sender: FDA-Public Use
  Company Number: FR-B.I. PHARMACEUTICALS,INC./RIDGEFIELD-2013-FF-01437FF

PATIENT
  Age: 66 Year
  Sex: Male

DRUGS (6)
  1. PRADAXA [Suspect]
     Indication: ATRIAL FIBRILLATION
     Dosage: 220 MG
     Route: 048
     Dates: start: 201304, end: 20130514
  2. LASILIX [Concomitant]
     Dosage: 20 MG
     Route: 048
  3. RAMIPRIL [Concomitant]
     Dosage: 5 MG
     Route: 048
  4. ZOCOR [Concomitant]
     Dosage: 5 MG
     Route: 048
  5. METFORMINE [Concomitant]
     Route: 048
  6. STAGID [Concomitant]
     Route: 048

REACTIONS (1)
  - Myocardial infarction [Recovered/Resolved with Sequelae]
